FAERS Safety Report 15281043 (Version 1)
Quarter: 2018Q3

REPORT INFORMATION
  Report Type: Spontaneous
  Country: FR (occurrence: FR)
  Receive Date: 20180815
  Receipt Date: 20180815
  Transmission Date: 20181010
  Serious: Yes (Life-Threatening, Hospitalization, Other)
  Sender: FDA-Public Use
  Company Number: FR-TELIGENT, INC-IGIL20180457

PATIENT
  Age: 59 Year
  Sex: Female
  Weight: 53 kg

DRUGS (2)
  1. CEFTAZIDIME. [Suspect]
     Active Substance: CEFTAZIDIME
     Indication: PNEUMONIA PSEUDOMONAL
     Dosage: UNKNOWN
     Route: 065
     Dates: start: 20180510, end: 20180524
  2. CIFLOX [Suspect]
     Active Substance: CIPROFLOXACIN
     Indication: PNEUMONIA PSEUDOMONAL
     Dosage: UNKNOWN
     Route: 065
     Dates: start: 20180510, end: 20180524

REACTIONS (3)
  - Liver transplant [Recovering/Resolving]
  - Hepatitis acute [Recovering/Resolving]
  - Hepatic encephalopathy [Recovering/Resolving]

NARRATIVE: CASE EVENT DATE: 20180624
